FAERS Safety Report 7902956-9 (Version None)
Quarter: 2011Q4

REPORT INFORMATION
  Report Type: 
  Country: None (occurrence: None)
  Receive Date: 20111103
  Receipt Date: 20111018
  Transmission Date: 20120403
  Serious: Yes (Hospitalization)
  Sender: FDA-Public Use
  Company Number: DSA_47925_2011

PATIENT
  Age: 73 Year
  Sex: Female

DRUGS (9)
  1. NYSTATIN [Concomitant]
  2. ENALAPRIL MALEATE [Suspect]
     Indication: PRODUCT USED FOR UNKNOWN INDICATION
     Dosage: (DF ORAL)
     Route: 048
  3. FLUVASTATIN SODIUM [Concomitant]
  4. DIAZEPAM [Concomitant]
  5. PAROXETINE HCL [Concomitant]
  6. DILTIAZEM HCL [Concomitant]
  7. AMLODIPINE [Concomitant]
  8. ASPIRIN [Concomitant]
  9. AUGMENTIN '125' [Concomitant]

REACTIONS (6)
  - UPPER GASTROINTESTINAL HAEMORRHAGE [None]
  - CHOLELITHIASIS [None]
  - WHITE BLOOD CELL COUNT INCREASED [None]
  - BILIARY FISTULA [None]
  - HAEMATEMESIS [None]
  - VASCULAR PSEUDOANEURYSM [None]
